FAERS Safety Report 10272170 (Version 3)
Quarter: 2014Q4

REPORT INFORMATION
  Report Type: Spontaneous
  Country: CA (occurrence: CA)
  Receive Date: 20140702
  Receipt Date: 20141111
  Transmission Date: 20150528
  Serious: Yes (Other)
  Sender: FDA-Public Use
  Company Number: CA-AMGEN-CANSP2013071975

PATIENT
  Age: 73 Year
  Sex: Female

DRUGS (4)
  1. MACROBID [Concomitant]
     Active Substance: NITROFURANTOIN\NITROFURANTOIN MONOHYDRATE
  2. PROLIA [Suspect]
     Active Substance: DENOSUMAB
     Indication: OSTEOPOROSIS POSTMENOPAUSAL
     Dosage: 60 MG, Q6MO
     Route: 058
     Dates: start: 20130204, end: 201402
  3. AVAPRO [Concomitant]
     Active Substance: IRBESARTAN
  4. LIPITOR [Concomitant]
     Active Substance: ATORVASTATIN CALCIUM

REACTIONS (14)
  - Urinary tract infection [Unknown]
  - Dysuria [Unknown]
  - Pyrexia [Unknown]
  - Nodule [Recovered/Resolved]
  - Tooth disorder [Not Recovered/Not Resolved]
  - Micturition urgency [Recovered/Resolved]
  - Muscle spasms [Not Recovered/Not Resolved]
  - Pollakiuria [Recovered/Resolved]
  - Pruritus [Recovered/Resolved]
  - Erythema [Recovered/Resolved]
  - Arthralgia [Unknown]
  - Haematuria [Unknown]
  - Infection susceptibility increased [Unknown]
  - Burning sensation [Recovered/Resolved]

NARRATIVE: CASE EVENT DATE: 201302
